FAERS Safety Report 4365994-1 (Version None)
Quarter: 2004Q2

REPORT INFORMATION
  Report Type: 
  Country: None (occurrence: None)
  Receive Date: 20040526
  Receipt Date: 20040526
  Transmission Date: 20050107
  Serious: Yes (Hospitalization)
  Sender: FDA-Public Use
  Company Number: None

PATIENT
  Sex: Male
  Weight: 82.5547 kg

DRUGS (10)
  1. BACTRIM [Suspect]
     Indication: PNEUMONIA
     Dosage: 400 MG Q 12 H INTRAVENOUS
     Route: 042
     Dates: start: 20030712, end: 20030716
  2. AMIODARONE HCL [Concomitant]
  3. ENOXAPARIN SODIUM [Concomitant]
  4. ASPIRIN [Concomitant]
  5. CLOPIDOGREL BISULFATE [Concomitant]
  6. DIGOXIN [Concomitant]
  7. REGULAR INSULIN [Concomitant]
  8. PRAVASTATIN [Concomitant]
  9. PREDNISONE [Concomitant]
  10. SENNA [Concomitant]

REACTIONS (2)
  - BLOOD METHAEMOGLOBIN PRESENT [None]
  - NEUTROPENIA [None]
